FAERS Safety Report 8485401 (Version 8)
Quarter: 2013Q3

REPORT INFORMATION
  Report Type: Spontaneous
  Country: US (occurrence: US)
  Receive Date: 20120330
  Receipt Date: 20130725
  Transmission Date: 20140515
  Serious: Yes (Hospitalization, Disabling, Other)
  Sender: FDA-Public Use
  Company Number: US-009507513-1203USA03355

PATIENT
  Sex: Female
  Weight: 71.67 kg

DRUGS (8)
  1. FOSAMAX [Suspect]
     Indication: BONE DENSITY DECREASED
     Dosage: 70 MG, UNK
     Route: 048
     Dates: start: 200802, end: 201107
  2. FOSAMAX [Suspect]
     Indication: OSTEOPENIA
  3. FOSAMAX [Suspect]
     Indication: OSTEOPOROSIS
     Dosage: 10 MG, UNK
     Route: 048
     Dates: start: 19990830, end: 20010326
  4. FOSAMAX [Suspect]
     Dosage: 70 MG, QW
     Route: 048
     Dates: start: 20010326, end: 200910
  5. PREMARIN [Concomitant]
     Indication: POSTMENOPAUSE
     Route: 048
     Dates: start: 1988, end: 2005
  6. MK-0152 [Concomitant]
     Dosage: 12.5 MG, UNK
     Route: 048
  7. COZAAR [Concomitant]
     Dosage: 50 MG, BID
     Route: 048
  8. ALENDRONATE SODIUM [Suspect]
     Dosage: 70 MG, UNK
     Route: 048
     Dates: start: 20080220

REACTIONS (49)
  - Femur fracture [Unknown]
  - Femur fracture [Unknown]
  - Arteriosclerosis [Unknown]
  - Hip fracture [Unknown]
  - Stress fracture [Unknown]
  - Cerebral infarction [Unknown]
  - Femur fracture [Unknown]
  - Syncope [Unknown]
  - Stress fracture [Unknown]
  - Low turnover osteopathy [Unknown]
  - Cataract [Unknown]
  - Gallbladder disorder [Unknown]
  - Diabetes mellitus [Unknown]
  - Road traffic accident [Unknown]
  - Contusion [Unknown]
  - Cerebral small vessel ischaemic disease [Unknown]
  - Upper respiratory tract infection [Recovered/Resolved]
  - Nasopharyngitis [Recovering/Resolving]
  - Infected dermal cyst [Unknown]
  - Skin papilloma [Unknown]
  - Nodule [Unknown]
  - Cough [Unknown]
  - Asthma [Unknown]
  - Limb injury [Unknown]
  - Skin lesion [Unknown]
  - Calculus ureteric [Unknown]
  - Road traffic accident [Unknown]
  - Contusion [Unknown]
  - Fall [Unknown]
  - Arthropathy [Unknown]
  - Chronic obstructive pulmonary disease [Unknown]
  - Osteoporosis [Unknown]
  - Head injury [Unknown]
  - Dysuria [Unknown]
  - Cardiomegaly [Unknown]
  - Eustachian tube dysfunction [Unknown]
  - Eye infection [Unknown]
  - Nasopharyngitis [Unknown]
  - Urinary incontinence [Unknown]
  - Sinus disorder [Unknown]
  - Atrophic vulvovaginitis [Unknown]
  - Pharyngitis streptococcal [Unknown]
  - Upper respiratory tract infection [Unknown]
  - Tympanic membrane perforation [Unknown]
  - Nephrolithiasis [Unknown]
  - Nausea [Unknown]
  - Diarrhoea [Unknown]
  - Gastrooesophageal reflux disease [Unknown]
  - Dizziness [Recovered/Resolved]
